FAERS Safety Report 8848637 (Version 2)
Quarter: 2012Q4

REPORT INFORMATION
  Report Type: 
  Country: US (occurrence: US)
  Receive Date: 20121018
  Receipt Date: 20121026
  Transmission Date: 20130627
  Serious: Yes (Hospitalization, Other)
  Sender: FDA-Public Use
  Company Number: US-ROCHE-1142095

PATIENT
  Age: 63 Year
  Sex: Female
  Weight: 95.34 kg

DRUGS (7)
  1. BONIVA [Suspect]
     Indication: OSTEOPOROSIS
     Route: 048
     Dates: start: 20120109, end: 20120109
  2. VITAMIN CODE RAW IRON [Concomitant]
     Route: 048
  3. LEVOTHYROXINE [Concomitant]
     Indication: HYPOTHYROIDISM
     Route: 048
  4. DILTIAZEM HCL [Concomitant]
     Indication: BLOOD PRESSURE
     Route: 048
  5. VITAMIN D2 [Concomitant]
     Route: 065
  6. MULTIVITAMIN [Concomitant]
     Route: 048
  7. FISH OIL [Concomitant]
     Route: 048

REACTIONS (6)
  - Adverse reaction [Unknown]
  - Chest discomfort [Recovered/Resolved]
  - Dyspnoea [Recovered/Resolved]
  - Blood pressure increased [Unknown]
  - Malaise [Unknown]
  - Osteoporosis [Unknown]
